FAERS Safety Report 9875834 (Version 1)
Quarter: 2014Q1

REPORT INFORMATION
  Report Type: Spontaneous
  Country: DE (occurrence: None)
  Receive Date: 20140204
  Receipt Date: 20140204
  Transmission Date: 20141002
  Serious: Yes (Hospitalization)
  Sender: FDA-Public Use
  Company Number: 1401-0209

PATIENT
  Age: 86 Year
  Sex: Female

DRUGS (1)
  1. EYELEA (AFLIBERCEPT) (INJECTION) (AFLIBERCEPT) [Suspect]
     Indication: AGE-RELATED MACULAR DEGENERATION
     Route: 031
     Dates: start: 201312

REACTIONS (5)
  - Cholelithiasis [None]
  - Chest pain [None]
  - Fatigue [None]
  - Malaise [None]
  - Memory impairment [None]
